FAERS Safety Report 6783775-6 (Version None)
Quarter: 2010Q2

REPORT INFORMATION
  Report Type: 
  Country: None (occurrence: None)
  Receive Date: 20100622
  Receipt Date: 20100607
  Transmission Date: 20101027
  Serious: Yes (Other)
  Sender: FDA-Public Use
  Company Number: US-BAYER-201022594NA

PATIENT
  Age: 33 Year
  Sex: Male
  Weight: 111 kg

DRUGS (1)
  1. EOVIST [Suspect]
     Indication: NUCLEAR MAGNETIC RESONANCE IMAGING
     Dosage: TOTAL DAILY DOSE: 10 ML
     Route: 042
     Dates: start: 20100430, end: 20100430

REACTIONS (4)
  - ABDOMINAL PAIN UPPER [None]
  - HAEMATEMESIS [None]
  - NAUSEA [None]
  - VOMITING [None]
